FAERS Safety Report 5116241-4 (Version None)
Quarter: 2006Q3

REPORT INFORMATION
  Report Type: 
  Country: None (occurrence: None)
  Receive Date: 20060927
  Receipt Date: 20060629
  Transmission Date: 20061208
  Serious: Yes (Hospitalization, Disabling)
  Sender: FDA-Public Use
  Company Number: JP-GLAXOSMITHKLINE-B0429561A

PATIENT
  Age: 53 Year
  Sex: Male

DRUGS (14)
  1. ZIAGEN [Suspect]
     Indication: HIV INFECTION
     Dosage: 600MG PER DAY
     Route: 048
     Dates: start: 20030320, end: 20040331
  2. ZIAGEN [Suspect]
     Dosage: 300MG TWICE PER DAY
     Route: 048
     Dates: start: 20040401
  3. EPIVIR [Concomitant]
     Indication: HIV INFECTION
     Route: 048
     Dates: start: 20010927, end: 20030331
  4. EPIVIR [Concomitant]
     Dosage: 150MG TWICE PER DAY
     Route: 048
     Dates: start: 20060401
  5. RETROVIR [Concomitant]
     Indication: HIV INFECTION
     Dosage: 400MG PER DAY
     Route: 048
     Dates: start: 20020425, end: 20030320
  6. RETROVIR [Concomitant]
     Dosage: 500MG PER DAY
     Route: 048
     Dates: start: 20051128
  7. ZERIT [Concomitant]
     Indication: HIV INFECTION
     Dosage: 60MG PER DAY
     Route: 048
     Dates: start: 20010927, end: 20020425
  8. NORVIR [Concomitant]
     Indication: HIV INFECTION
     Route: 048
     Dates: start: 20030320, end: 20040307
  9. REYATAZ [Concomitant]
     Indication: HIV INFECTION
     Dosage: 400MG PER DAY
     Route: 048
     Dates: start: 20040308, end: 20050323
  10. DIFLUCAN [Concomitant]
     Indication: CANDIDIASIS
     Dosage: 100MG PER DAY
     Route: 048
     Dates: start: 20050401
  11. FOIPAN [Concomitant]
     Indication: PANCREATITIS
     Dosage: 200MG THREE TIMES PER DAY
     Route: 048
     Dates: start: 20060401
  12. ZERIT [Concomitant]
     Route: 048
     Dates: start: 20030320, end: 20051127
  13. NORVIR [Concomitant]
     Route: 048
     Dates: start: 20050324
  14. REYATAZ [Concomitant]
     Route: 048
     Dates: start: 20050324

REACTIONS (2)
  - HEPATIC NEOPLASM MALIGNANT [None]
  - HEPATITIS B [None]
